FAERS Safety Report 7399363-7 (Version None)
Quarter: 2011Q2

REPORT INFORMATION
  Report Type: 
  Country: None (occurrence: None)
  Receive Date: 20110407
  Receipt Date: 20110328
  Transmission Date: 20111010
  Serious: Yes (Other)
  Sender: FDA-Public Use
  Company Number: US-MYLANLABS-2011S1004782

PATIENT
  Age: 54 Year
  Sex: Male

DRUGS (10)
  1. COUMADIN [Concomitant]
     Indication: ANTICOAGULANT THERAPY
  2. FENTANYL-100 [Suspect]
     Dosage: CHANGED Q72H.
     Route: 062
     Dates: start: 20110307, end: 20110309
  3. LEVOTHYROXINE [Concomitant]
     Indication: HYPOTHYROIDISM
  4. CRESTOR [Concomitant]
     Indication: BLOOD CHOLESTEROL
  5. ASPIRIN [Concomitant]
  6. TRICOR [Concomitant]
  7. ZOCOR [Concomitant]
     Indication: BLOOD CHOLESTEROL
  8. VASOTEC [Concomitant]
  9. FENTANYL-100 [Suspect]
     Indication: BACK PAIN
     Dosage: CHANGED Q72H.
     Route: 062
     Dates: start: 20110307, end: 20110309
  10. ZYLOPRIM [Concomitant]

REACTIONS (4)
  - AGITATION [None]
  - FAECALOMA [None]
  - SLEEP TERROR [None]
  - PRURITUS ALLERGIC [None]
